FAERS Safety Report 8334481-8 (Version None)
Quarter: 2012Q2

REPORT INFORMATION
  Report Type: 
  Country: None (occurrence: None)
  Receive Date: 20120503
  Receipt Date: 20110510
  Transmission Date: 20120825
  Serious: No
  Sender: FDA-Public Use
  Company Number: US-TEVA-2011001395

PATIENT
  Sex: Female
  Weight: 96.702 kg

DRUGS (3)
  1. NUVIGIL [Suspect]
     Indication: NARCOLEPSY
     Dosage: 225 MILLIGRAM;
     Route: 048
     Dates: start: 20110308, end: 20110324
  2. NUVIGIL [Suspect]
     Indication: SLEEP APNOEA SYNDROME
     Dosage: 150 MILLIGRAM;
     Route: 048
     Dates: start: 20110305, end: 20110307
  3. NUVIGIL [Suspect]
     Route: 048
     Dates: start: 20110428

REACTIONS (1)
  - PARAESTHESIA [None]
